FAERS Safety Report 10619951 (Version 1)
Quarter: 2014Q4

REPORT INFORMATION
  Report Type: Spontaneous
  Country: KE (occurrence: None)
  Receive Date: 20141128
  Receipt Date: 20141128
  Transmission Date: 20150529
  Serious: Yes (Death, Other)
  Sender: FDA-Public Use
  Company Number: B0950259A

PATIENT
  Age: 45 Year
  Sex: Male

DRUGS (8)
  1. CIPROFLOXACIN (CIPROFLOXACIN) [Suspect]
     Active Substance: CIPROFLOXACIN
     Dates: start: 20131017, end: 20131112
  2. TINIDAZOLE. [Suspect]
     Active Substance: TINIDAZOLE
     Dates: start: 20131107, end: 20131109
  3. SEPTRIN [Suspect]
     Active Substance: SULFAMETHOXAZOLE\TRIMETHOPRIM
     Dates: start: 20130801, end: 20131107
  4. ABACAVIR SULFATE + LAMIVUDINE [Suspect]
     Active Substance: ABACAVIR SULFATE\LAMIVUDINE
     Indication: HIV INFECTION
     Dates: start: 20131017, end: 20131123
  5. EFAVIRENZ (EFAVIRENZ) UNKNOWN [Suspect]
     Active Substance: EFAVIRENZ
     Dates: start: 20130815, end: 20131123
  6. FOOD [Suspect]
     Active Substance: UNSPECIFIED INGREDIENT
     Dates: start: 20130815, end: 20131123
  7. UNKNOWN DRUG [Suspect]
     Active Substance: UNSPECIFIED INGREDIENT
     Dates: start: 20131107, end: 20131123
  8. FLUCONAZOLE (FLUCONAZOLE) UNKNOWN [Suspect]
     Active Substance: FLUCONAZOLE
     Dates: start: 20131107, end: 20131121

REACTIONS (1)
  - Death [None]

NARRATIVE: CASE EVENT DATE: 20131123
